FAERS Safety Report 22068731 (Version 1)
Quarter: 2023Q1

REPORT INFORMATION
  Report Type: Other
  Country: US (occurrence: None)
  Receive Date: 20230307
  Receipt Date: 20230307
  Transmission Date: 20230417
  Serious: No
  Sender: FDA-Public Use
  Company Number: US-ROCHE-3300141

PATIENT
  Age: 49 Year
  Sex: Female
  Weight: 70.370 kg

DRUGS (16)
  1. OCREVUS [Suspect]
     Active Substance: OCRELIZUMAB
     Indication: Relapsing-remitting multiple sclerosis
     Dosage: 300MG IV X 1 THEN 2 WEEKS LATER 300MG IV X 1
     Route: 042
     Dates: start: 20181207
  2. ATORVASTATIN [Concomitant]
     Active Substance: ATORVASTATIN
  3. VITAMIN B12 [Concomitant]
     Active Substance: CYANOCOBALAMIN
  4. BACLOFEN [Concomitant]
     Active Substance: BACLOFEN
  5. BOTOX [Concomitant]
     Active Substance: ONABOTULINUMTOXINA
  6. DEXTROAMPHETAMINE [Concomitant]
     Active Substance: DEXTROAMPHETAMINE
  7. FLUTICASONE PROPIONATE [Concomitant]
     Active Substance: FLUTICASONE PROPIONATE
  8. LISINOPRIL [Concomitant]
     Active Substance: LISINOPRIL
  9. MECLIZINE [Concomitant]
     Active Substance: MECLIZINE HYDROCHLORIDE
  10. OMEPRAZOLE [Concomitant]
     Active Substance: OMEPRAZOLE
  11. OXYCODONE [Concomitant]
     Active Substance: OXYCODONE
  12. SOLIFENACIN [Concomitant]
     Active Substance: SOLIFENACIN
  13. VITAMIN D3 [Concomitant]
     Active Substance: CHOLECALCIFEROL
  14. ARMODAFINIL [Concomitant]
     Active Substance: ARMODAFINIL
  15. MODAFINIL [Concomitant]
     Active Substance: MODAFINIL
  16. ADDERALL [Concomitant]
     Active Substance: AMPHETAMINE ASPARTATE\AMPHETAMINE SULFATE\DEXTROAMPHETAMINE SACCHARATE\DEXTROAMPHETAMINE SULFATE

REACTIONS (7)
  - Cardiac disorder [Unknown]
  - Carpal tunnel syndrome [Unknown]
  - Vision blurred [Unknown]
  - Muscle twitching [Unknown]
  - Stress [Unknown]
  - Depression [Unknown]
  - COVID-19 [Recovered/Resolved]
